FAERS Safety Report 16147374 (Version 1)
Quarter: 2019Q2

REPORT INFORMATION
  Report Type: Spontaneous
  Country: US (occurrence: US)
  Receive Date: 20190402
  Receipt Date: 20190402
  Transmission Date: 20190711
  Serious: No
  Sender: FDA-Public Use
  Company Number: US-ALLERGAN-1853416US

PATIENT

DRUGS (1)
  1. LILETTA [Suspect]
     Active Substance: LEVONORGESTREL
     Indication: MATERNAL EXPOSURE TIMING UNSPECIFIED
     Dosage: 52 MG, SINGLE
     Route: 063
     Dates: start: 20181019

REACTIONS (1)
  - Maternal exposure during breast feeding [Unknown]
